FAERS Safety Report 6385095-0 (Version None)
Quarter: 2009Q4

REPORT INFORMATION
  Report Type: 
  Country: None (occurrence: None)
  Receive Date: 20091002
  Receipt Date: 20090923
  Transmission Date: 20100525
  Serious: Yes (Life-Threatening, Other)
  Sender: FDA-Public Use
  Company Number: US-WYE-H10772109

PATIENT
  Age: 41 Year
  Sex: Female

DRUGS (1)
  1. PREMARIN [Suspect]
     Dosage: UNKNOWN
     Route: 065
     Dates: start: 19810101

REACTIONS (2)
  - APNOEA [None]
  - DRUG HYPERSENSITIVITY [None]
